FAERS Safety Report 4483704-4 (Version None)
Quarter: 2004Q4

REPORT INFORMATION
  Report Type: 
  Country: None (occurrence: None)
  Receive Date: 20041022
  Receipt Date: 20041022
  Transmission Date: 20050328
  Serious: Yes (Other)
  Sender: FDA-Public Use
  Company Number: None

PATIENT
  Sex: Male
  Weight: 83.9154 kg

DRUGS (2)
  1. DURAGESIC [Suspect]
     Indication: FIBROMYALGIA
     Dosage: 25 MCG Q 72 HRS
  2. DURAGESIC [Suspect]
     Indication: PAIN
     Dosage: 25 MCG Q 72 HRS

REACTIONS (1)
  - ORTHOSTATIC HYPOTENSION [None]
